FAERS Safety Report 23132669 (Version 1)
Quarter: 2023Q4

REPORT INFORMATION
  Report Type: Spontaneous
  Country: US (occurrence: US)
  Receive Date: 20231101
  Receipt Date: 20231101
  Transmission Date: 20240109
  Serious: Yes (Other)
  Sender: FDA-Public Use
  Company Number: US-PDX-000237

PATIENT
  Age: 31 Year
  Sex: Female

DRUGS (1)
  1. METOPROLOL [Suspect]
     Active Substance: METOPROLOL
     Indication: Wolff-Parkinson-White syndrome
     Route: 048

REACTIONS (4)
  - Condition aggravated [Recovered/Resolved]
  - Wolff-Parkinson-White syndrome [Recovered/Resolved]
  - Exposure during pregnancy [Unknown]
  - Product use in unapproved indication [Unknown]
